FAERS Safety Report 6131542-9 (Version None)
Quarter: 2009Q1

REPORT INFORMATION
  Report Type: 
  Country: None (occurrence: None)
  Receive Date: 20090325
  Receipt Date: 20081009
  Transmission Date: 20090719
  Serious: Yes (Life-Threatening, Hospitalization)
  Sender: FDA-Public Use
  Company Number: US-BRISTOL-MYERS SQUIBB COMPANY-14349625

PATIENT
  Age: 75 Year
  Sex: Male

DRUGS (2)
  1. ERBITUX [Suspect]
     Indication: HEAD AND NECK CANCER
     Dosage: LOADING DOSE: 880MG
     Route: 042
     Dates: start: 20080923, end: 20080923
  2. RADIATION THERAPY [Suspect]
     Indication: HEAD AND NECK CANCER

REACTIONS (1)
  - INFUSION RELATED REACTION [None]
